FAERS Safety Report 5329452-X (Version None)
Quarter: 2007Q2

REPORT INFORMATION
  Report Type: 
  Country: None (occurrence: None)
  Receive Date: 20070221
  Receipt Date: 20060111
  Transmission Date: 20071010
  Serious: Yes (Hospitalization)
  Sender: FDA-Public Use
  Company Number: US-SHR-03-013709

PATIENT
  Age: 59 Year
  Sex: Female
  Weight: 70.3 kg

DRUGS (2)
  1. CLIMARA [Suspect]
     Indication: HORMONE REPLACEMENT THERAPY
     Dosage: 0.025 MG/D, CONT, TRANSDERMAL
     Route: 062
     Dates: start: 20030701, end: 20030819
  2. PLAVIX [Concomitant]

REACTIONS (3)
  - DISSOCIATION [None]
  - LIVER FUNCTION TEST ABNORMAL [None]
  - TRANSIENT ISCHAEMIC ATTACK [None]
